FAERS Safety Report 8327836-9 (Version None)
Quarter: 2012Q2

REPORT INFORMATION
  Report Type: 
  Country: None (occurrence: None)
  Receive Date: 20120502
  Receipt Date: 20120423
  Transmission Date: 20120825
  Serious: Yes (Hospitalization)
  Sender: FDA-Public Use
  Company Number: US-AMGEN-USASP2012025577

PATIENT
  Age: 56 Year
  Sex: Female

DRUGS (1)
  1. ENBREL [Suspect]
     Indication: RHEUMATOID ARTHRITIS
     Dosage: 50 MG, QWK
     Dates: start: 19980101

REACTIONS (13)
  - STRESS [None]
  - LIMB DEFORMITY [None]
  - FALL [None]
  - ARTHRALGIA [None]
  - SCAR [None]
  - WRONG TECHNIQUE IN DRUG USAGE PROCESS [None]
  - ARTHROPATHY [None]
  - INTERVERTEBRAL DISC OPERATION [None]
  - RHEUMATOID ARTHRITIS [None]
  - VITAMIN D DEFICIENCY [None]
  - INJECTION SITE PAIN [None]
  - INTERVERTEBRAL DISC PROTRUSION [None]
  - JOINT STIFFNESS [None]
